FAERS Safety Report 19002467 (Version 1)
Quarter: 2021Q1

REPORT INFORMATION
  Report Type: Report from Study
  Country: US (occurrence: US)
  Receive Date: 20210312
  Receipt Date: 20210312
  Transmission Date: 20210420
  Serious: Yes (Other)
  Sender: FDA-Public Use
  Company Number: US-MYLANLABS-2021M1014560

PATIENT

DRUGS (1)
  1. MYCOPHENOLATE MOFETIL. [Suspect]
     Active Substance: MYCOPHENOLATE MOFETIL
     Indication: SYSTEMIC LUPUS ERYTHEMATOSUS
     Dosage: THE PATIENT UNDERWENT A....
     Route: 065

REACTIONS (5)
  - Cranial nerve disorder [Unknown]
  - Off label use [Unknown]
  - Withdrawal syndrome [Unknown]
  - Systemic lupus erythematosus [Unknown]
  - Condition aggravated [Unknown]
